FAERS Safety Report 6204334-X (Version None)
Quarter: 2009Q2

REPORT INFORMATION
  Report Type: 
  Country: None (occurrence: None)
  Receive Date: 20090527
  Receipt Date: 20090427
  Transmission Date: 20091009
  Serious: Yes (Death)
  Sender: FDA-Public Use
  Company Number: US-PFIZER INC-2008011243

PATIENT
  Sex: Male
  Weight: 93 kg

DRUGS (16)
  1. BLINDED *VANCOMYCIN [Suspect]
     Indication: PNEUMONIA STAPHYLOCOCCAL
     Dosage: UNK
     Route: 042
     Dates: start: 20070831, end: 20070903
  2. BLINDED LINEZOLID [Suspect]
     Indication: PNEUMONIA STAPHYLOCOCCAL
     Dosage: UNK
     Route: 042
     Dates: start: 20070831, end: 20070903
  3. INSULIN [Concomitant]
     Dosage: 7 EVERY 1 HOURS7 UNITS/HOUR
     Route: 042
     Dates: start: 20070827, end: 20070913
  4. MULTI-VITAMINS [Concomitant]
     Dosage: 5 ML, UNK
     Route: 048
     Dates: start: 20070910, end: 20070913
  5. METOPROLOL [Concomitant]
     Dosage: 5 MG NGT Q6
     Route: 042
     Dates: start: 20070911, end: 20070913
  6. LABETALOL HCL [Concomitant]
     Dosage: 30 MG, UNK
     Route: 042
     Dates: start: 20070912, end: 20070913
  7. TYLENOL [Concomitant]
     Dosage: Q4 PRN
     Route: 048
     Dates: start: 20070827, end: 20070913
  8. POTASSIUM CHLORIDE [Concomitant]
     Dosage: 40 MG NGT
     Route: 048
     Dates: start: 20070828, end: 20070913
  9. NEUTRA-PHOS [Concomitant]
     Dosage: UNK
     Route: 048
     Dates: start: 20070827, end: 20070828
  10. PROPOFOL [Concomitant]
     Dosage: UNK
     Route: 042
     Dates: start: 20070827, end: 20070903
  11. NEXIUM [Concomitant]
     Dosage: 40 MG, UNK
     Route: 042
     Dates: start: 20070901, end: 20070913
  12. VANCOMYCIN [Concomitant]
     Dosage: 1G IV Q12
     Route: 042
     Dates: start: 20070906, end: 20070913
  13. ZOSYN [Concomitant]
     Dosage: UNK
     Route: 042
     Dates: start: 20070830, end: 20070913
  14. DOPAMINE HCL [Concomitant]
     Dosage: UNK
     Route: 042
     Dates: start: 20070913, end: 20070913
  15. FENTANYL [Concomitant]
     Dosage: UNK
     Route: 042
     Dates: start: 20070829, end: 20070910
  16. AMIKACIN [Concomitant]
     Dosage: 600 MG Q12
     Route: 042
     Dates: start: 20070827, end: 20070913

REACTIONS (1)
  - BRAIN DEATH [None]
